FAERS Safety Report 23668596 (Version 1)
Quarter: 2024Q1

REPORT INFORMATION
  Report Type: Spontaneous
  Country: PK (occurrence: PK)
  Receive Date: 20240325
  Receipt Date: 20240325
  Transmission Date: 20240410
  Serious: Yes (Other)
  Sender: FDA-Public Use
  Company Number: PK-002147023-NVSC2024PK062831

PATIENT
  Age: 85 Year
  Sex: Female

DRUGS (4)
  1. LETROZOLE [Suspect]
     Active Substance: LETROZOLE
     Indication: Breast cancer metastatic
     Dosage: 2.5 MG
     Route: 065
  2. ZOLEDRONIC ACID [Suspect]
     Active Substance: ZOLEDRONIC ACID
     Indication: Breast cancer metastatic
     Dosage: ONCE IN 6 MONTHS
     Route: 042
  3. PALBOCICLIB [Suspect]
     Active Substance: PALBOCICLIB
     Indication: Breast cancer metastatic
     Dosage: 4-WEEK CYCLES (3 WEEKS OF TREATMENT FOLLOWED BY 1 WEEK OFF)
     Route: 048
  4. PALBOCICLIB [Suspect]
     Active Substance: PALBOCICLIB
     Dosage: 75 MG, QD (CONTINUED ON THE SAME TREATMENT REGIMEN WITHOUT TREATMENT INTERRUPTION)
     Route: 065

REACTIONS (2)
  - Thrombocytopenia [Unknown]
  - Neutropenia [Unknown]
